FAERS Safety Report 10420089 (Version 1)
Quarter: 2014Q3

REPORT INFORMATION
  Report Type: Spontaneous
  Country: ZM (occurrence: None)
  Receive Date: 20140828
  Receipt Date: 20140828
  Transmission Date: 20150326
  Serious: Yes (Congenital Anomaly)
  Sender: FDA-Public Use
  Company Number: 2014ZM01152

PATIENT

DRUGS (12)
  1. ZIDOVUDINE (ZIDOVUDINE) [Suspect]
     Active Substance: ZIDOVUDINE
     Route: 064
  2. EFAVIRENZ (EFAVIRENZ) [Suspect]
     Active Substance: EFAVIRENZ
     Route: 064
  3. DIDANOSINE. [Suspect]
     Active Substance: DIDANOSINE
     Route: 064
  4. LAMIVUDINE (LAMIVUDINE) TABLET [Suspect]
     Active Substance: LAMIVUDINE
     Route: 064
  5. STAVUDINE (STAVUDINE) [Suspect]
     Active Substance: STAVUDINE
     Route: 064
  6. TENOFOVIR DISOFOXIL FUMARATE [Suspect]
     Active Substance: TENOFOVIR DISOPROXIL FUMARATE
     Route: 064
  7. SEQUINAVIR [Suspect]
     Active Substance: SAQUINAVIR
     Route: 064
  8. EMTRICITABINE (EMTRICITABINE) UNKNOWN [Suspect]
     Active Substance: EMTRICITABINE
     Route: 064
  9. NEVIRAPINE (NEVIRAPINE) [Suspect]
     Active Substance: NEVIRAPINE
     Route: 064
  10. INDINAVIR [Suspect]
     Active Substance: INDINAVIR
     Route: 064
  11. ABACAVIR (ABACAVIR) [Suspect]
     Active Substance: ABACAVIR
     Route: 064
  12. LOPINAVIR AND RITONAVIR [Suspect]
     Active Substance: LOPINAVIR\RITONAVIR
     Route: 064

REACTIONS (2)
  - Strabismus congenital [None]
  - Maternal drugs affecting foetus [None]
